FAERS Safety Report 7092262-X (Version None)
Quarter: 2010Q4

REPORT INFORMATION
  Report Type: 
  Country: None (occurrence: None)
  Receive Date: 20101109
  Receipt Date: 20101025
  Transmission Date: 20110411
  Serious: Yes (Other)
  Sender: FDA-Public Use
  Company Number: GB-AMGEN-GBRSP2010001741

PATIENT

DRUGS (2)
  1. ENBREL [Suspect]
     Dosage: 50 MG (FREQUENCY UNSPECIFIED)
     Route: 058
  2. METHOTREXATE [Concomitant]
     Indication: RHEUMATOID ARTHRITIS
     Dosage: UNKNOWN

REACTIONS (3)
  - ERYTHEMA [None]
  - INFLAMMATION [None]
  - SKIN REACTION [None]
